FAERS Safety Report 8439042-8 (Version None)
Quarter: 2012Q2

REPORT INFORMATION
  Report Type: 
  Country: None (occurrence: None)
  Receive Date: 20120615
  Receipt Date: 20120604
  Transmission Date: 20120825
  Serious: Yes (Other)
  Sender: FDA-Public Use
  Company Number: US-ELI_LILLY_AND_COMPANY-US201110003214

PATIENT
  Age: 59 Year
  Sex: Female

DRUGS (10)
  1. CYMBALTA [Suspect]
     Dosage: 60 MG, UNK
     Dates: start: 20120201
  2. CYMBALTA [Suspect]
     Indication: OSTEOARTHRITIS
     Dosage: 30 MG, QD
     Dates: start: 20111011
  3. CYMBALTA [Suspect]
     Dosage: 30 MG, QD
  4. MULTI-VITAMIN [Concomitant]
  5. BACLOFEN [Concomitant]
  6. TOPROL-XL [Concomitant]
     Dosage: 50 MG, UNK
  7. MICARDIS HCT [Concomitant]
  8. CALCIUM D [Concomitant]
  9. SIMVASTATIN [Concomitant]
  10. GLUCOSAMIN                         /00943605/ [Concomitant]

REACTIONS (15)
  - DRUG INTERACTION [None]
  - HYPERTENSION [None]
  - DIZZINESS [None]
  - EYE PAIN [None]
  - HEADACHE [None]
  - PALPITATIONS [None]
  - SINUS BRADYCARDIA [None]
  - GASTROINTESTINAL MOTILITY DISORDER [None]
  - DIARRHOEA [None]
  - WHITE BLOOD CELLS URINE [None]
  - TINNITUS [None]
  - SOMNOLENCE [None]
  - URINARY RETENTION [None]
  - EXERCISE ELECTROCARDIOGRAM ABNORMAL [None]
  - DEPRESSED LEVEL OF CONSCIOUSNESS [None]
